FAERS Safety Report 6445134-5 (Version None)
Quarter: 2009Q4

REPORT INFORMATION
  Report Type: 
  Country: None (occurrence: None)
  Receive Date: 20091118
  Receipt Date: 20091109
  Transmission Date: 20100525
  Serious: Yes (Other)
  Sender: FDA-Public Use
  Company Number: CA-ASTRAZENECA-2009SE19508

PATIENT
  Age: 48 Year
  Sex: Male

DRUGS (11)
  1. SEROQUEL [Suspect]
     Indication: DEPRESSION
     Route: 048
     Dates: start: 20080309
  2. SEROQUEL [Suspect]
     Indication: ANXIETY
     Route: 048
     Dates: start: 20080309
  3. SEROQUEL [Suspect]
     Route: 048
     Dates: start: 20090813
  4. SEROQUEL [Suspect]
     Route: 048
     Dates: start: 20090813
  5. CRESTOR [Suspect]
     Indication: BLOOD CHOLESTEROL
     Route: 048
     Dates: start: 20090224
  6. METFORMIN HCL [Suspect]
     Indication: DIABETES MELLITUS
     Dates: start: 20090702
  7. MIRTAZAPINE [Suspect]
  8. WELLBUTRIN XL [Suspect]
     Indication: GENERALISED ANXIETY DISORDER
     Route: 048
     Dates: start: 20080723, end: 20080903
  9. PAXIL [Concomitant]
     Indication: GENERALISED ANXIETY DISORDER
     Dates: start: 20050101, end: 20090106
  10. ATIVAN [Concomitant]
     Indication: GENERALISED ANXIETY DISORDER
     Dates: start: 20050101, end: 20090304
  11. CIPRALEX [Concomitant]
     Indication: GENERALISED ANXIETY DISORDER
     Dates: start: 20090106

REACTIONS (2)
  - DIABETES MELLITUS [None]
  - WEIGHT INCREASED [None]
